FAERS Safety Report 8012757-1 (Version None)
Quarter: 2011Q4

REPORT INFORMATION
  Report Type: 
  Country: None (occurrence: None)
  Receive Date: 20111229
  Receipt Date: 20111219
  Transmission Date: 20120403
  Serious: Yes (Death)
  Sender: FDA-Public Use
  Company Number: US-PFIZER INC-2011309854

PATIENT
  Age: 17 Year
  Sex: Female

DRUGS (18)
  1. ACETAMINOPHEN [Suspect]
  2. FLUOXETINE [Suspect]
  3. NAPROXEN [Suspect]
  4. CITALOPRAM [Suspect]
  5. PHENOL [Suspect]
  6. ACETAMINOPHEN AND HYDROCODONE BITARTRATE [Suspect]
  7. HYDROCODONE [Suspect]
  8. LOPERAMIDE [Suspect]
  9. MONTELUKAST [Suspect]
  10. IBUPROFEN [Suspect]
  11. HALOPERIDOL [Suspect]
  12. DEXTROMETHORPHAN HYDROBROMIDE [Suspect]
  13. GUAIFENESIN [Suspect]
  14. METHYLPHENIDATE [Suspect]
  15. PSEUDOEPHEDRINE HCL [Suspect]
  16. ROSUVASTATIN [Suspect]
  17. HYOSCYAMINE [Suspect]
  18. MAGNESIUM [Suspect]

REACTIONS (1)
  - COMPLETED SUICIDE [None]
